FAERS Safety Report 15371009 (Version 1)
Quarter: 2018Q3

REPORT INFORMATION
  Report Type: Spontaneous
  Country: US (occurrence: US)
  Receive Date: 20180905
  Receipt Date: 20180905
  Transmission Date: 20181010
  Serious: Yes (Hospitalization)
  Sender: FDA-Public Use
  Company Number: None

PATIENT
  Age: 69 Year
  Sex: Male
  Weight: 78.5 kg

DRUGS (1)
  1. XELODA [Suspect]
     Active Substance: CAPECITABINE
     Dates: end: 20180525

REACTIONS (4)
  - Abdominal distension [None]
  - Vomiting [None]
  - Abscess [None]
  - Intestinal dilatation [None]

NARRATIVE: CASE EVENT DATE: 20180807
